FAERS Safety Report 11431189 (Version 1)
Quarter: 2015Q3

REPORT INFORMATION
  Report Type: Spontaneous
  Country: JP (occurrence: JP)
  Receive Date: 20150828
  Receipt Date: 20150828
  Transmission Date: 20151125
  Serious: Yes (Death)
  Sender: FDA-Public Use
  Company Number: JP-TEVA-588453ISR

PATIENT
  Age: 57 Year
  Sex: Male
  Weight: 62 kg

DRUGS (20)
  1. CALONAL [Concomitant]
     Active Substance: ACETAMINOPHEN
     Indication: CANCER PAIN
     Route: 048
  2. SOLANAX [Concomitant]
     Active Substance: ALPRAZOLAM
     Indication: ANXIETY
     Route: 048
  3. E-FEN BUCCAL [Suspect]
     Active Substance: FENTANYL CITRATE
     Dosage: DAILY DOSE: 800-1600 MICROGRAM
     Route: 002
     Dates: start: 20150729, end: 20150808
  4. LOXONIN [Concomitant]
     Active Substance: LOXOPROFEN SODIUM
     Indication: CANCER PAIN
     Route: 048
  5. ALOSITOL [Concomitant]
     Active Substance: ALLOPURINOL
     Indication: HYPERURICAEMIA
     Route: 048
  6. LUNESTA [Concomitant]
     Active Substance: ESZOPICLONE
     Indication: INSOMNIA
     Route: 048
  7. FENTOS [Concomitant]
     Active Substance: FENTANYL
     Dates: start: 20150724
  8. OPSO [Concomitant]
     Active Substance: MORPHINE HYDROCHLORIDE
     Indication: BREAKTHROUGH PAIN
     Route: 048
     Dates: start: 20150803
  9. E-FEN BUCCAL [Suspect]
     Active Substance: FENTANYL CITRATE
     Dosage: 300 MICROGRAM DAILY;
     Route: 002
     Dates: start: 20150719, end: 20150725
  10. OXINORM [Concomitant]
     Active Substance: OXYCODONE HYDROCHLORIDE
     Indication: BREAKTHROUGH PAIN
     Route: 048
     Dates: start: 20150803
  11. GASTER [Concomitant]
     Active Substance: FAMOTIDINE
     Indication: GASTRIC ULCER
     Route: 048
  12. E-FEN BUCCAL [Suspect]
     Active Substance: FENTANYL CITRATE
     Indication: BREAKTHROUGH PAIN
     Dosage: 100 MICROGRAM DAILY;
     Route: 002
     Dates: start: 20150717, end: 20150717
  13. JUZENTAIHOTO [Concomitant]
     Indication: HYPERHIDROSIS
     Route: 048
  14. URALYT [Concomitant]
     Active Substance: POTASSIUM CITRATE\TRISODIUM CITRATE DIHYDRATE
     Indication: HYPERURICAEMIA
     Route: 048
  15. MAGMITT [Concomitant]
     Active Substance: MAGNESIUM OXIDE
     Indication: PROPHYLAXIS
     Route: 048
  16. ZYPREXA [Concomitant]
     Active Substance: OLANZAPINE
     Indication: NEURALGIA
     Route: 048
  17. E-FEN BUCCAL [Suspect]
     Active Substance: FENTANYL CITRATE
     Dosage: DAILY DOSE: 200-1200 MICROGRAM
     Route: 002
     Dates: start: 20150725, end: 20150728
  18. FENTOS [Concomitant]
     Active Substance: FENTANYL
     Indication: CANCER PAIN
     Dates: start: 20150713, end: 20150724
  19. ROZEUS [Concomitant]
     Indication: CHEMOTHERAPY
     Route: 042
  20. RINDERON V [Concomitant]
     Active Substance: BETAMETHASONE VALERATE
     Indication: MALAISE
     Route: 048

REACTIONS (1)
  - Non-small cell lung cancer [Fatal]
